FAERS Safety Report 16995188 (Version 1)
Quarter: 2019Q4

REPORT INFORMATION
  Report Type: Spontaneous
  Country: HR (occurrence: HR)
  Receive Date: 20191105
  Receipt Date: 20191105
  Transmission Date: 20200122
  Serious: Yes (Hospitalization)
  Sender: FDA-Public Use
  Company Number: HR-MYLANLABS-2019M1104336

PATIENT
  Age: 45 Year
  Sex: Female

DRUGS (4)
  1. BUDESONIDE. [Suspect]
     Active Substance: BUDESONIDE
     Indication: ASTHMA
  2. FORMOTEROL [Suspect]
     Active Substance: FORMOTEROL
     Indication: ASTHMA
  3. BUDESONIDE. [Suspect]
     Active Substance: BUDESONIDE
     Indication: RHINITIS ALLERGIC
     Dosage: UNK
  4. FORMOTEROL [Suspect]
     Active Substance: FORMOTEROL
     Indication: RHINITIS ALLERGIC
     Dosage: UNK

REACTIONS (3)
  - Sinusitis [Unknown]
  - Pneumococcal sepsis [Unknown]
  - Pneumonia [Unknown]
